FAERS Safety Report 17007140 (Version 1)
Quarter: 2019Q4

REPORT INFORMATION
  Report Type: Spontaneous
  Country: US (occurrence: US)
  Receive Date: 20190926
  Receipt Date: 20190926
  Transmission Date: 20200122
  Serious: Yes (Hospitalization)
  Sender: FDA-Public Use
  Company Number: None

PATIENT
  Age: 74 Year
  Sex: Male
  Weight: 88 kg

DRUGS (1)
  1. BENOXINATE\FLUORESCEIN [Suspect]
     Active Substance: BENOXINATE\FLUORESCEIN
     Indication: IMAGING PROCEDURE
     Route: 031
     Dates: start: 20190821, end: 20190821

REACTIONS (3)
  - Dysphagia [None]
  - Anaphylactic reaction [None]
  - Dyspnoea [None]

NARRATIVE: CASE EVENT DATE: 20190821
